FAERS Safety Report 4700174-9 (Version None)
Quarter: 2005Q2

REPORT INFORMATION
  Report Type: 
  Country: None (occurrence: None)
  Receive Date: 20050624
  Receipt Date: 20050624
  Transmission Date: 20051028
  Serious: Yes (Other)
  Sender: FDA-Public Use
  Company Number: None

PATIENT
  Age: 10 Year
  Sex: Male
  Weight: 31.7518 kg

DRUGS (2)
  1. ATOMOXETINE     40 MG    LILLY [Suspect]
     Indication: ATTENTION DEFICIT/HYPERACTIVITY DISORDER
     Dosage: 40 MG    DAILY AT 4 PM    ORAL
     Route: 048
     Dates: start: 20031001, end: 20031203
  2. CONCERTA [Concomitant]

REACTIONS (9)
  - ABNORMAL BEHAVIOUR [None]
  - AGGRESSION [None]
  - ANGER [None]
  - DRUG INEFFECTIVE [None]
  - HYPOMANIA [None]
  - JUDGEMENT IMPAIRED [None]
  - MANIA [None]
  - NEGATIVISM [None]
  - REBOUND EFFECT [None]
